FAERS Safety Report 23279268 (Version 1)
Quarter: 2023Q4

REPORT INFORMATION
  Report Type: Report from Study
  Country: DE (occurrence: DE)
  Receive Date: 20231209
  Receipt Date: 20231209
  Transmission Date: 20240110
  Serious: Yes (Hospitalization)
  Sender: FDA-Public Use
  Company Number: DE-MYLANLABS-2023M1055072

PATIENT
  Sex: Male

DRUGS (5)
  1. HULIO [Suspect]
     Active Substance: ADALIMUMAB-FKJP
     Indication: Psoriatic arthropathy
     Dosage: 40 MG
     Route: 065
     Dates: start: 20200822, end: 20210215
  2. HULIO [Suspect]
     Active Substance: ADALIMUMAB-FKJP
     Indication: Spinal osteoarthritis
     Dosage: 40 MG
     Route: 065
     Dates: start: 20220331
  3. METHOTREXATE [Suspect]
     Active Substance: METHOTREXATE
     Indication: Psoriatic arthropathy
     Dosage: 12.5 MG
     Route: 065
     Dates: start: 20201019, end: 20201214
  4. METHOTREXATE [Suspect]
     Active Substance: METHOTREXATE
     Indication: Spinal osteoarthritis
     Dosage: 15 MG
     Route: 065
     Dates: start: 20110607, end: 20201012
  5. UNSPECIFIED INGREDIENT [Suspect]
     Active Substance: UNSPECIFIED INGREDIENT
     Indication: Product used for unknown indication
     Dosage: UNK
     Route: 065

REACTIONS (1)
  - Meniscus injury [Recovered/Resolved]

NARRATIVE: CASE EVENT DATE: 20220518
